FAERS Safety Report 4641664-7 (Version None)
Quarter: 2005Q2

REPORT INFORMATION
  Report Type: 
  Country: None (occurrence: None)
  Receive Date: 20050421
  Receipt Date: 20050413
  Transmission Date: 20051028
  Serious: Yes (Death, Life-Threatening, Other)
  Sender: FDA-Public Use
  Company Number: 200510628BCC

PATIENT
  Age: 60 Year
  Sex: Male
  Weight: 104.3273 kg

DRUGS (8)
  1. ASPIRIN [Suspect]
     Indication: BACK PAIN
     Dosage: 1000 MG
     Dates: start: 19940101
  2. ASPIRIN [Suspect]
     Indication: NECK PAIN
     Dosage: 1000 MG
     Dates: start: 19940101
  3. BUFFERIN [Concomitant]
  4. ANACIN [Concomitant]
  5. TYLENOL [Concomitant]
  6. VIOXX [Concomitant]
  7. VICODIN [Concomitant]
  8. ATIVAN [Concomitant]

REACTIONS (5)
  - DUODENAL ULCER [None]
  - HEPATIC NEOPLASM MALIGNANT [None]
  - PEPTIC ULCER [None]
  - SQUAMOUS CELL CARCINOMA [None]
  - THROAT CANCER [None]
